FAERS Safety Report 5573963-9 (Version None)
Quarter: 2007Q4

REPORT INFORMATION
  Report Type: 
  Country: None (occurrence: None)
  Receive Date: 20071220
  Receipt Date: 20071213
  Transmission Date: 20080405
  Serious: Yes (Hospitalization)
  Sender: FDA-Public Use
  Company Number: 2007S1010763

PATIENT
  Age: 17 Year
  Sex: Male
  Weight: 75.2971 kg

DRUGS (16)
  1. CLOZAPINE [Suspect]
     Indication: PSYCHOTIC DISORDER
     Dosage: 50 MG; DAILY; ORAL
     Route: 048
     Dates: start: 20070301, end: 20071001
  2. CLOZAPINE [Suspect]
     Indication: SCHIZOPHRENIA
     Dosage: 50 MG; DAILY; ORAL
     Route: 048
     Dates: start: 20070301, end: 20071001
  3. CLOZAPINE [Suspect]
     Indication: PSYCHOTIC DISORDER
     Dosage: 500 MG; DAILY; ORAL
     Route: 048
     Dates: start: 20070301, end: 20071001
  4. CLOZAPINE [Suspect]
     Indication: SCHIZOPHRENIA
     Dosage: 500 MG; DAILY; ORAL
     Route: 048
     Dates: start: 20070301, end: 20071001
  5. PROZAC [Suspect]
     Dosage: 10 MG; DAILY; ORAL
     Route: 048
     Dates: start: 20070501, end: 20071001
  6. CALCITRIOL [Concomitant]
  7. SYNTHROID [Concomitant]
  8. LORAZEPAM [Concomitant]
  9. PROPRANOLOL [Concomitant]
  10. ZYPREXA [Concomitant]
  11. TRIHEXYPHENIDYL HCL [Concomitant]
  12. TUMS [Concomitant]
  13. COLACE [Concomitant]
  14. FIBER [Concomitant]
  15. ZYRTEC [Concomitant]
  16. METFORMIN [Concomitant]

REACTIONS (2)
  - COLITIS [None]
  - CYTOMEGALOVIRUS INFECTION [None]
